FAERS Safety Report 10150037 (Version 1)
Quarter: 2014Q2

REPORT INFORMATION
  Report Type: Spontaneous
  Country: US (occurrence: US)
  Receive Date: 20140502
  Receipt Date: 20140502
  Transmission Date: 20141212
  Serious: Yes (Death)
  Sender: FDA-Public Use
  Company Number: US-TAKEDA-2014TUS003430

PATIENT
  Age: 90 Year
  Sex: Female

DRUGS (1)
  1. COLCRYS [Suspect]
     Indication: GOUT
     Dosage: 0.6 MG, QD

REACTIONS (1)
  - Death [Fatal]
